FAERS Safety Report 13039395 (Version 1)
Quarter: 2016Q4

REPORT INFORMATION
  Report Type: Spontaneous
  Country: PK (occurrence: US)
  Receive Date: 20161216
  Receipt Date: 20161216
  Transmission Date: 20170207
  Serious: No
  Sender: FDA-Public Use
  Company Number: None

PATIENT
  Age: 7 Month
  Sex: Male
  Weight: 8 kg

DRUGS (3)
  1. CLARITECK (CLARITHROMYCIN) [Suspect]
     Active Substance: CLARITHROMYCIN
     Indication: NASOPHARYNGITIS
     Dosage: ?          QUANTITY:4 DROP(S);?
     Route: 048
  2. CLARITEK PANADOL [Concomitant]
  3. CLARITECK (CLARITHROMYCIN) [Suspect]
     Active Substance: CLARITHROMYCIN
     Indication: COUGH
     Dosage: ?          QUANTITY:4 DROP(S);?
     Route: 048

REACTIONS (1)
  - Cough [None]

NARRATIVE: CASE EVENT DATE: 20161216
